FAERS Safety Report 8881014 (Version 1)
Quarter: 2012Q4

REPORT INFORMATION
  Report Type: 
  Country: US (occurrence: US)
  Receive Date: 20121101
  Receipt Date: 20121101
  Transmission Date: 20130627
  Serious: Yes (Other)
  Sender: FDA-Public Use
  Company Number: US-PFIZER INC-2012268608

PATIENT
  Age: 65 Year
  Sex: Male
  Weight: 147 kg

DRUGS (7)
  1. LYRICA [Suspect]
     Indication: DIABETIC NEUROPATHY
     Dosage: 50 mg, 2x/day
     Route: 048
     Dates: start: 2012
  2. METFORMIN [Concomitant]
     Indication: DIABETES
     Dosage: 1000 mg, 2x/day
  3. GLIMEPIRIDE [Concomitant]
     Indication: DIABETES
     Dosage: UNK, daily
  4. JANUVIA [Concomitant]
     Indication: DIABETES
     Dosage: 75 mg, daily
  5. LISINOPRIL [Concomitant]
     Indication: BLOOD PRESSURE ABNORMAL
     Dosage: UNK, daily
  6. PRAVASTATIN [Concomitant]
     Indication: HDL LOW
     Dosage: UNK, daily
  7. ASPIRIN [Concomitant]
     Indication: HEART DISORDER
     Dosage: 325 mg, daily

REACTIONS (3)
  - Glycosylated haemoglobin increased [Unknown]
  - Back pain [Unknown]
  - Mobility decreased [Unknown]
